FAERS Safety Report 17704191 (Version 10)
Quarter: 2021Q4

REPORT INFORMATION
  Report Type: Report from Study
  Country: US (occurrence: US)
  Receive Date: 20200424
  Receipt Date: 20211118
  Transmission Date: 20220303
  Serious: No
  Sender: FDA-Public Use
  Company Number: NVSC2020US109271

PATIENT
  Sex: Male

DRUGS (1)
  1. COSENTYX [Suspect]
     Active Substance: SECUKINUMAB
     Indication: Product used for unknown indication
     Dosage: UNK UNK, UNKNOWN
     Route: 065

REACTIONS (6)
  - Hypoacusis [Unknown]
  - Rash [Unknown]
  - Psoriasis [Unknown]
  - Product dose omission issue [Unknown]
  - Hearing disability [Unknown]
  - Muscular weakness [Unknown]
